FAERS Safety Report 20182497 (Version 3)
Quarter: 2022Q1

REPORT INFORMATION
  Report Type: Report from Study
  Country: CA (occurrence: CA)
  Receive Date: 20211214
  Receipt Date: 20220201
  Transmission Date: 20220423
  Serious: Yes (Death)
  Sender: FDA-Public Use
  Company Number: CA-NOVARTISPH-NVSC2021CA285357

PATIENT
  Sex: Female

DRUGS (5)
  1. RYDAPT [Suspect]
     Active Substance: MIDOSTAURIN
     Indication: Acute myeloid leukaemia
     Dosage: 50 MG, BID (DAY 8-21)
     Route: 048
     Dates: start: 20211018
  2. RYDAPT [Suspect]
     Active Substance: MIDOSTAURIN
     Dosage: 25 MG
     Route: 048
     Dates: start: 20211021
  3. RYDAPT [Suspect]
     Active Substance: MIDOSTAURIN
     Dosage: 50 MG, BID (DAY 8-21)
     Route: 048
     Dates: start: 20211031
  4. RYDAPT [Suspect]
     Active Substance: MIDOSTAURIN
     Dosage: 50 MG, BID (DAY 8-21)
     Route: 048
  5. RYDAPT [Suspect]
     Active Substance: MIDOSTAURIN
     Dosage: 50 MG, BID (DAY 8-21)
     Route: 048

REACTIONS (3)
  - Sepsis [Fatal]
  - Respiratory distress [Fatal]
  - Acute myeloid leukaemia refractory [Fatal]
